FAERS Safety Report 14133118 (Version 3)
Quarter: 2017Q4

REPORT INFORMATION
  Report Type: Spontaneous
  Country: US (occurrence: US)
  Receive Date: 20171027
  Receipt Date: 20171123
  Transmission Date: 20180321
  Serious: Yes (Other)
  Sender: FDA-Public Use
  Company Number: US-ASTRAZENECA-2017SF07442

PATIENT
  Age: 27335 Day
  Sex: Female
  Weight: 50 kg

DRUGS (23)
  1. AROMASIN [Suspect]
     Active Substance: EXEMESTANE
     Route: 065
  2. HYDROCODONE/ACETAMLNOPHEN [Concomitant]
     Indication: PAIN
     Dosage: 10MG-325MG TABLET TAKE 1 PO Q4H PRN PAIN.
     Route: 048
  3. MELOXICAM. [Concomitant]
     Active Substance: MELOXICAM
     Route: 048
  4. VITAMIN B12 [Concomitant]
     Active Substance: CYANOCOBALAMIN
     Dosage: TAKE 1 AS DIRECTED
     Route: 048
  5. CALCIUM+ D [Concomitant]
     Dosage: 500MG-1000 TABLET, CHEWABLE TAKE 1 PO TID
     Route: 048
  6. XGEVA [Concomitant]
     Active Substance: DENOSUMAB
     Dosage: AS DIRECTED
     Route: 058
  7. FASLODEX [Suspect]
     Active Substance: FULVESTRANT
     Route: 030
  8. FENTANYL. [Concomitant]
     Active Substance: FENTANYL
     Dosage: 50 MCG/HR PATCH(ES), TRANSDERMAL TAKE 1 PATCH(ES) TOPICAL Q72H AS DIRECTED
     Route: 061
  9. VALIUM [Concomitant]
     Active Substance: DIAZEPAM
     Dosage: 1.0DF UNKNOWN
     Route: 048
     Dates: start: 20150318
  10. INFLUENZA VIRUS VACCINE [Suspect]
     Active Substance: INFLUENZA VIRUS VACCINE
     Route: 065
  11. LYRICA [Suspect]
     Active Substance: PREGABALIN
     Route: 065
  12. IMODIUM [Concomitant]
     Active Substance: LOPERAMIDE HYDROCHLORIDE
     Dosage: 1 MG/7.5ML LIQUID (ML) TAKE 5 ML
     Dates: start: 20140303
  13. IRON DEXTRAN COMPLEX [Concomitant]
     Dosage: AS DIRECTED
     Route: 042
  14. ARIMIDEX [Suspect]
     Active Substance: ANASTROZOLE
     Route: 048
  15. TAMOXIFEN [Suspect]
     Active Substance: TAMOXIFEN
     Route: 048
  16. NEXIUM [Suspect]
     Active Substance: ESOMEPRAZOLE MAGNESIUM
     Route: 048
  17. IBRANCE [Suspect]
     Active Substance: PALBOCICLIB
     Route: 048
  18. LIDODERM [Concomitant]
     Active Substance: LIDOCAINE
     Dosage: TAKE 1 PATCH TOPICAL DAILY
     Route: 061
     Dates: start: 20141008
  19. KCL ELIXIR [Concomitant]
     Dosage: 20MEQ/15ML UQUID
     Route: 048
     Dates: start: 20140326
  20. LOMOTIL [Suspect]
     Active Substance: ATROPINE SULFATE\DIPHENOXYLATE HYDROCHLORIDE
     Dosage: 2.5- .025 MG TABLET THREE TIMES A DAY
     Route: 048
     Dates: start: 20140326
  21. CYCLOBENZAPRINE HYDROCHLORIDE. [Concomitant]
     Active Substance: CYCLOBENZAPRINE HYDROCHLORIDE
     Route: 048
  22. PREDNISONE. [Concomitant]
     Active Substance: PREDNISONE
     Dosage: TAKE 1 PO AS DIRECTED
     Route: 048
  23. PROBIOTIC AND ACIDOPHILUS [Concomitant]
     Dosage: 300MM-250 CAPSULE TAKE 1 PO DAILY
     Route: 048

REACTIONS (15)
  - Back pain [Unknown]
  - Malignant neoplasm progression [Unknown]
  - Headache [Unknown]
  - Swelling [Unknown]
  - Underweight [Unknown]
  - Metastases to lung [Unknown]
  - Neoplasm malignant [Unknown]
  - Dehydration [Unknown]
  - Iron deficiency anaemia [Unknown]
  - Clostridium difficile infection [Unknown]
  - Skin turgor decreased [Unknown]
  - Anxiety [Unknown]
  - Metastases to bone [Unknown]
  - Breast cancer stage IV [Unknown]
  - Skin atrophy [Unknown]

NARRATIVE: CASE EVENT DATE: 20140110
